FAERS Safety Report 4426282-8 (Version None)
Quarter: 2004Q3

REPORT INFORMATION
  Report Type: 
  Country: None (occurrence: None)
  Receive Date: 20040811
  Receipt Date: 20040726
  Transmission Date: 20050211
  Serious: Yes (Hospitalization, Other)
  Sender: FDA-Public Use
  Company Number: 8006202

PATIENT
  Age: 39 Year
  Sex: Female

DRUGS (1)
  1. KEPPRA [Suspect]
     Indication: EPILEPSY
     Dosage: 1000 MG
     Dates: start: 20010101

REACTIONS (9)
  - GLOSSOPHARYNGEAL NERVE PARALYSIS [None]
  - HEADACHE POSTOPERATIVE [None]
  - HYPOGLOSSAL NERVE DISORDER [None]
  - INTRACRANIAL ANEURYSM [None]
  - PARESIS [None]
  - POST PROCEDURAL COMPLICATION [None]
  - REFUSAL OF TREATMENT BY PATIENT [None]
  - TRANSIENT ISCHAEMIC ATTACK [None]
  - VOCAL CORD PARESIS [None]
